FAERS Safety Report 5068025-3 (Version None)
Quarter: 2006Q3

REPORT INFORMATION
  Report Type: 
  Country: None (occurrence: None)
  Receive Date: 20060802
  Receipt Date: 20060705
  Transmission Date: 20061208
  Serious: Yes (Disabling)
  Sender: FDA-Public Use
  Company Number: US-ROCHE-454361

PATIENT
  Age: 41 Year
  Sex: Female
  Weight: 44 kg

DRUGS (2)
  1. BONIVA [Suspect]
     Indication: OSTEOPENIA
     Route: 042
     Dates: start: 20060629
  2. OMEPRAZOLE MAGNESIUM [Concomitant]
     Route: 048

REACTIONS (15)
  - CELLULITIS [None]
  - ERYTHEMA [None]
  - INJECTION SITE ERYTHEMA [None]
  - INJECTION SITE HAEMATOMA [None]
  - INJECTION SITE IRRITATION [None]
  - INJECTION SITE PAIN [None]
  - INJECTION SITE SWELLING [None]
  - JOINT RANGE OF MOTION DECREASED [None]
  - MEDICATION ERROR [None]
  - MUSCLE RUPTURE [None]
  - OEDEMA PERIPHERAL [None]
  - PAIN IN EXTREMITY [None]
  - PARAESTHESIA [None]
  - VENOUS INJURY [None]
  - WRONG TECHNIQUE IN DRUG USAGE PROCESS [None]
